FAERS Safety Report 24108898 (Version 1)
Quarter: 2024Q3

REPORT INFORMATION
  Report Type: Report from Study
  Country: US (occurrence: US)
  Receive Date: 20240718
  Receipt Date: 20240718
  Transmission Date: 20241016
  Serious: Yes (Other)
  Sender: JOHNSON AND JOHNSON
  Company Number: US-JNJFOC-20240600640

PATIENT
  Age: 65 Year
  Sex: Female

DRUGS (2)
  1. SPRAVATO [Suspect]
     Active Substance: ESKETAMINE
     Indication: Depression
     Dosage: ^56 MG, 2 TOTAL DOSES^
     Dates: start: 20240220, end: 20240222
  2. SPRAVATO [Suspect]
     Active Substance: ESKETAMINE
     Dosage: ^84 MG, 12 TOTAL DOSES^
     Dates: start: 20240229, end: 20240507

REACTIONS (6)
  - Intentional self-injury [Unknown]
  - Dizziness [Recovered/Resolved]
  - Anxiety [Unknown]
  - Depression [Unknown]
  - Anger [Unknown]
  - Infection [Unknown]

NARRATIVE: CASE EVENT DATE: 20240101
